FAERS Safety Report 23525282 (Version 1)
Quarter: 2024Q1

REPORT INFORMATION
  Report Type: Spontaneous
  Country: DE (occurrence: DE)
  Receive Date: 20240215
  Receipt Date: 20240215
  Transmission Date: 20240410
  Serious: Yes (Other)
  Sender: FDA-Public Use
  Company Number: DE-PBT-009026

PATIENT
  Age: 15 Year
  Sex: Male

DRUGS (2)
  1. TACROLIMUS [Suspect]
     Active Substance: TACROLIMUS
     Indication: Prophylaxis against transplant rejection
     Route: 065
  2. EVEROLIMUS [Concomitant]
     Active Substance: EVEROLIMUS
     Indication: Prophylaxis against transplant rejection
     Route: 065

REACTIONS (6)
  - BK virus infection [Not Recovered/Not Resolved]
  - Epstein-Barr viraemia [Not Recovered/Not Resolved]
  - Hepatorenal syndrome [Unknown]
  - Pancytopenia [Unknown]
  - Peritonitis [Unknown]
  - Cardiac failure [Unknown]
